FAERS Safety Report 21064784 (Version 2)
Quarter: 2022Q4

REPORT INFORMATION
  Report Type: Spontaneous
  Country: FR (occurrence: FR)
  Receive Date: 20220711
  Receipt Date: 20221018
  Transmission Date: 20230113
  Serious: Yes (Hospitalization, Other)
  Sender: FDA-Public Use
  Company Number: None

PATIENT
  Age: 76 Year
  Sex: Male

DRUGS (1)
  1. INLYTA [Suspect]
     Active Substance: AXITINIB
     Indication: Renal cancer metastatic
     Dosage: 3 MG, 2X/DAY
     Route: 048
     Dates: start: 20220525, end: 20220530

REACTIONS (5)
  - Back pain [Recovered/Resolved]
  - Diarrhoea [Recovered/Resolved]
  - N-terminal prohormone brain natriuretic peptide increased [Unknown]
  - Cardiac failure [Recovered/Resolved]
  - Lung disorder [Recovering/Resolving]

NARRATIVE: CASE EVENT DATE: 20220529
